FAERS Safety Report 13857458 (Version 3)
Quarter: 2018Q2

REPORT INFORMATION
  Report Type: Report from Study
  Country: None (occurrence: US)
  Receive Date: 20170810
  Receipt Date: 20180517
  Transmission Date: 20180711
  Serious: Yes (Other)
  Sender: FDA-Public Use
  Company Number: US-ABBVIE-17K-163-1961685-00

PATIENT
  Sex: Female

DRUGS (2)
  1. HUMIRA [Suspect]
     Active Substance: ADALIMUMAB
     Route: 058
     Dates: start: 2017
  2. HUMIRA [Suspect]
     Active Substance: ADALIMUMAB
     Indication: COLITIS ULCERATIVE
     Route: 058
     Dates: start: 201406, end: 201704

REACTIONS (8)
  - Tendon rupture [Unknown]
  - Arthralgia [Not Recovered/Not Resolved]
  - Exostosis [Unknown]
  - Loss of personal independence in daily activities [Unknown]
  - Procedural pain [Not Recovered/Not Resolved]
  - Musculoskeletal pain [Not Recovered/Not Resolved]
  - Sinusitis [Unknown]
  - Insomnia [Unknown]

NARRATIVE: CASE EVENT DATE: 2017
